FAERS Safety Report 5146217-2 (Version None)
Quarter: 2006Q4

REPORT INFORMATION
  Report Type: 
  Country: None (occurrence: None)
  Receive Date: 20061108
  Receipt Date: 20061027
  Transmission Date: 20070319
  Serious: Yes (Hospitalization)
  Sender: FDA-Public Use
  Company Number: JP-BRISTOL-MYERS SQUIBB COMPANY-13568829

PATIENT
  Age: 74 Year
  Sex: Female

DRUGS (9)
  1. GATIFLO TABS 100 MG [Suspect]
     Indication: BRONCHITIS ACUTE
     Route: 048
     Dates: start: 20061019, end: 20061020
  2. STARSIS [Suspect]
     Indication: DIABETES MELLITUS
     Route: 048
     Dates: start: 20060523
  3. MUCODYNE [Concomitant]
     Route: 048
     Dates: start: 20051018
  4. CLARITHROMYCIN [Concomitant]
     Route: 048
     Dates: start: 20051018
  5. DOMENAN [Concomitant]
     Route: 048
     Dates: start: 20051018
  6. PREDNISOLONE [Concomitant]
     Route: 048
     Dates: start: 20051018
  7. KETOPROFEN [Concomitant]
     Route: 048
     Dates: start: 20051018
  8. LANSOPRAZOLE [Concomitant]
     Route: 048
     Dates: start: 20051018
  9. LIPITOR [Concomitant]
     Route: 048
     Dates: start: 20051018

REACTIONS (1)
  - HYPOGLYCAEMIC COMA [None]
